FAERS Safety Report 22229759 (Version 3)
Quarter: 2023Q2

REPORT INFORMATION
  Report Type: Spontaneous
  Country: TR (occurrence: TR)
  Receive Date: 20230419
  Receipt Date: 20230601
  Transmission Date: 20230721
  Serious: Yes (Hospitalization, Other)
  Sender: FDA-Public Use
  Company Number: TR-BAYER-2023A051784

PATIENT
  Age: 24 Year
  Sex: Male
  Weight: 63.5 kg

DRUGS (3)
  1. VITRAKVI [Suspect]
     Active Substance: LAROTRECTINIB
     Indication: Testis cancer
     Dosage: 100 MG, BID
     Dates: start: 20221107, end: 20221125
  2. VITRAKVI [Suspect]
     Active Substance: LAROTRECTINIB
     Indication: Metastases to central nervous system
     Dosage: 100 MG, BID
     Dates: start: 20221126, end: 20221202
  3. KEPPRA [Concomitant]
     Active Substance: LEVETIRACETAM
     Indication: Seizure prophylaxis
     Dosage: 1000 MG, BID
     Route: 048
     Dates: start: 20191113, end: 20221125

REACTIONS (7)
  - Respiratory failure [None]
  - Arrhythmia [None]
  - Seizure [None]
  - General physical health deterioration [None]
  - Feeding disorder [None]
  - Lung disorder [None]
  - Suspected product quality issue [None]
